FAERS Safety Report 7590008-X (Version None)
Quarter: 2011Q3

REPORT INFORMATION
  Report Type: 
  Country: None (occurrence: None)
  Receive Date: 20110705
  Receipt Date: 20110613
  Transmission Date: 20111222
  Serious: Yes (Congenital Anomaly)
  Sender: FDA-Public Use
  Company Number: A0932725A

PATIENT
  Sex: Male

DRUGS (1)
  1. PAXIL [Suspect]
     Dosage: 20MG PER DAY
     Route: 064

REACTIONS (5)
  - STRABISMUS [None]
  - MATERNAL EXPOSURE DURING PREGNANCY [None]
  - HYDROCEPHALUS [None]
  - MACROCEPHALY [None]
  - FOOT DEFORMITY [None]
